FAERS Safety Report 10994969 (Version 3)
Quarter: 2015Q2

REPORT INFORMATION
  Report Type: Spontaneous
  Country: JP (occurrence: JP)
  Receive Date: 20150407
  Receipt Date: 20150427
  Transmission Date: 20150821
  Serious: Yes (Other)
  Sender: FDA-Public Use
  Company Number: JP-GLAXOSMITHKLINE-JP2015JPN038298

PATIENT
  Age: 83 Year
  Sex: Male
  Weight: 61 kg

DRUGS (19)
  1. IRBETAN [Suspect]
     Active Substance: IRBESARTAN
     Dosage: UNK
     Route: 048
  2. ZOVIRAX [Concomitant]
     Active Substance: ACYCLOVIR
     Dosage: UNK
  3. COSPANON [Concomitant]
     Active Substance: FLOPROPIONE
     Dosage: UNK
  4. RINDERON VG [Concomitant]
     Active Substance: BETAMETHASONE VALERATE\GENTAMICIN SULFATE
     Dosage: UNK
  5. MUCODYNE [Concomitant]
     Active Substance: CARBOCYSTEINE
     Dosage: UNK
  6. ROHYPNOL [Concomitant]
     Active Substance: FLUNITRAZEPAM
     Dosage: UNK
  7. RESTAMIN CORTISONE [Concomitant]
     Dosage: UNK
  8. HARNAL [Concomitant]
     Active Substance: TAMSULOSIN HYDROCHLORIDE
     Dosage: UNK
  9. EVIPROSTAT [Concomitant]
     Active Substance: CHIMAPHILA UMBELLATA\MANGANESE CHLORIDE\POPULUS TREMULOIDES\SODIUM TAUROCHOLATE
     Dosage: UNK
  10. VALTREX [Suspect]
     Active Substance: VALACYCLOVIR HYDROCHLORIDE
     Indication: HERPES ZOSTER
     Dosage: 1000 MG, TID
     Route: 048
     Dates: start: 20150313, end: 20150320
  11. CRAVIT [Concomitant]
     Active Substance: LEVOFLOXACIN
     Dosage: UNK
  12. EXCELASE [Concomitant]
     Dosage: UNK
  13. CALONAL [Concomitant]
     Active Substance: ACETAMINOPHEN
     Dosage: UNK
  14. RINDERON-V OINTMENT [Concomitant]
     Dosage: UNK
  15. LOXONIN [Suspect]
     Active Substance: LOXOPROFEN SODIUM
     Dosage: UNK
     Route: 065
  16. STROCAIN [Concomitant]
     Active Substance: OXETHAZAINE
     Dosage: UNK
  17. COMBEC CREAM [Concomitant]
     Dosage: UNK
  18. SELBEX [Concomitant]
     Active Substance: TEPRENONE
     Dosage: UNK
  19. URSO [Concomitant]
     Active Substance: URSODIOL
     Dosage: UNK

REACTIONS (1)
  - Renal disorder [Recovering/Resolving]

NARRATIVE: CASE EVENT DATE: 20150320
